FAERS Safety Report 7588772-9 (Version None)
Quarter: 2011Q3

REPORT INFORMATION
  Report Type: 
  Country: None (occurrence: None)
  Receive Date: 20110705
  Receipt Date: 20110627
  Transmission Date: 20111222
  Serious: Yes (Death, Hospitalization)
  Sender: FDA-Public Use
  Company Number: JP-JNJFOC-20110613227

PATIENT
  Age: 55 Year
  Sex: Female
  Weight: 49 kg

DRUGS (73)
  1. DOXORUBICIN HCL [Suspect]
     Route: 042
     Dates: start: 20090722, end: 20090722
  2. DECADRON [Concomitant]
     Route: 048
     Dates: start: 20090721, end: 20090721
  3. DECADRON [Concomitant]
     Route: 048
     Dates: start: 20091029, end: 20091101
  4. DECADRON [Concomitant]
     Route: 042
     Dates: start: 20090624, end: 20090624
  5. GRANISETRON [Concomitant]
     Indication: PROPHYLAXIS
     Route: 042
     Dates: start: 20090722, end: 20090722
  6. GRANISETRON [Concomitant]
     Route: 042
     Dates: start: 20090819, end: 20090819
  7. PYDOXAL [Concomitant]
     Route: 048
     Dates: start: 20091028
  8. DECADRON [Concomitant]
     Route: 048
     Dates: start: 20090818, end: 20090818
  9. DECADRON [Concomitant]
     Route: 048
     Dates: start: 20090930, end: 20090930
  10. DECADRON [Concomitant]
     Route: 048
     Dates: start: 20091006, end: 20091006
  11. CEFAZOLIN SODIUM [Concomitant]
     Route: 042
     Dates: start: 20090909, end: 20090914
  12. CEFACLOR [Concomitant]
     Route: 048
     Dates: start: 20090915, end: 20090920
  13. DOXORUBICIN HCL [Suspect]
     Route: 042
     Dates: start: 20091028, end: 20091028
  14. KETOPROFEN [Concomitant]
     Indication: BACK PAIN
     Route: 065
     Dates: start: 20090623, end: 20090623
  15. ZOLPIDEM [Concomitant]
     Dosage: P.R.N
     Route: 048
     Dates: end: 20090928
  16. JUVELA [Concomitant]
     Indication: PROPHYLAXIS
     Route: 048
     Dates: start: 20090623
  17. PYDOXAL [Concomitant]
     Route: 048
     Dates: start: 20090729, end: 20090818
  18. DECADRON [Concomitant]
     Route: 048
     Dates: start: 20090630, end: 20090630
  19. DECADRON [Concomitant]
     Route: 048
     Dates: start: 20090727, end: 20090727
  20. DECADRON [Concomitant]
     Route: 048
     Dates: start: 20090820, end: 20090824
  21. DECADRON [Concomitant]
     Route: 048
     Dates: start: 20090825, end: 20090825
  22. DECADRON [Concomitant]
     Route: 048
     Dates: start: 20090929, end: 20090929
  23. DECADRON [Concomitant]
     Route: 042
     Dates: start: 20091028, end: 20091028
  24. HEPARIN [Concomitant]
     Indication: PALMAR-PLANTAR ERYTHRODYSAESTHESIA SYNDROME
     Route: 061
     Dates: start: 20090703
  25. TOUCHRON [Concomitant]
     Route: 065
     Dates: start: 20090930
  26. RINDERON-VG [Concomitant]
     Route: 061
     Dates: start: 20090820
  27. DOXORUBICIN HCL [Suspect]
     Indication: OVARIAN CANCER RECURRENT
     Route: 042
     Dates: start: 20090624, end: 20090624
  28. DECADRON [Concomitant]
     Route: 048
     Dates: start: 20090624, end: 20090624
  29. DECADRON [Concomitant]
     Route: 048
     Dates: start: 20091102, end: 20091102
  30. DECADRON [Concomitant]
     Route: 042
     Dates: start: 20090819, end: 20090819
  31. DECADRON [Concomitant]
     Route: 042
     Dates: start: 20090722, end: 20090722
  32. DEQUALINIUM CHLORIDE [Concomitant]
     Route: 048
     Dates: start: 20090729
  33. SODIUM ALGINATE [Concomitant]
     Route: 048
     Dates: start: 20090729, end: 20090816
  34. ROHYPNOL [Concomitant]
     Route: 048
     Dates: start: 20090929
  35. GRANISETRON [Concomitant]
     Route: 042
     Dates: start: 20090930, end: 20090930
  36. PYDOXAL [Concomitant]
     Route: 048
     Dates: start: 20091007, end: 20091027
  37. PYDOXAL [Concomitant]
     Route: 048
     Dates: start: 20090722, end: 20090728
  38. DECADRON [Concomitant]
     Route: 048
     Dates: start: 20090625, end: 20090628
  39. DECADRON [Concomitant]
     Route: 048
     Dates: start: 20090722, end: 20090722
  40. DECADRON [Concomitant]
     Route: 048
     Dates: start: 20090819, end: 20090819
  41. DECADRON [Concomitant]
     Route: 048
     Dates: start: 20090826, end: 20090826
  42. DECADRON [Concomitant]
     Route: 048
     Dates: start: 20091001, end: 20091004
  43. DECADRON [Concomitant]
     Route: 048
     Dates: start: 20091028, end: 20091028
  44. HACHIAZULE [Concomitant]
     Indication: PROPHYLAXIS
     Route: 048
     Dates: start: 20090623
  45. CINAL [Concomitant]
     Indication: PROPHYLAXIS
     Route: 048
     Dates: start: 20090701
  46. TPN [Concomitant]
     Route: 048
     Dates: start: 20090728
  47. FERRIC PYROPHOSPHATE [Concomitant]
     Indication: PROPHYLAXIS
     Route: 048
     Dates: start: 20091030
  48. GRANISETRON [Concomitant]
     Route: 042
     Dates: start: 20091028, end: 20091028
  49. DOXORUBICIN HCL [Suspect]
     Route: 042
     Dates: start: 20090930, end: 20090930
  50. PYDOXAL [Concomitant]
     Route: 048
     Dates: start: 20090826, end: 20090929
  51. PYDOXAL [Concomitant]
     Route: 048
     Dates: start: 20090930, end: 20091006
  52. DECADRON [Concomitant]
     Route: 048
     Dates: start: 20090629, end: 20090629
  53. DECADRON [Concomitant]
     Route: 048
     Dates: start: 20090723, end: 20090726
  54. DECADRON [Concomitant]
     Route: 048
     Dates: start: 20090728, end: 20090728
  55. DECADRON [Concomitant]
     Route: 048
     Dates: start: 20091103, end: 20091103
  56. VITAMEDIN [Concomitant]
     Indication: PROPHYLAXIS
     Route: 048
     Dates: start: 20090701
  57. SODIUM ALGINATE [Concomitant]
     Indication: PROPHYLAXIS
     Route: 048
     Dates: start: 20090817
  58. IDOMETHINE [Concomitant]
     Route: 061
     Dates: start: 20091031
  59. HYDROCORTISONE BUTYRATE PROPIONATE [Concomitant]
     Route: 061
     Dates: start: 20090909, end: 20091029
  60. DOXORUBICIN HCL [Suspect]
     Route: 042
     Dates: start: 20090819, end: 20090819
  61. PYDOXAL [Concomitant]
     Indication: PROPHYLAXIS
     Route: 048
     Dates: start: 20090630, end: 20090721
  62. DECADRON [Concomitant]
     Indication: PROPHYLAXIS
     Route: 048
     Dates: start: 20090623, end: 20090623
  63. DECADRON [Concomitant]
     Route: 048
     Dates: start: 20091027, end: 20091027
  64. DECADRON [Concomitant]
     Route: 042
     Dates: start: 20090930, end: 20090930
  65. GRANISETRON [Concomitant]
     Route: 042
     Dates: start: 20090624, end: 20090624
  66. FAMOTIDINE [Concomitant]
     Route: 048
     Dates: start: 20090701, end: 20090714
  67. CELESTAMINE TAB [Concomitant]
     Route: 048
     Dates: start: 20090909, end: 20090915
  68. CELESTAMINE TAB [Concomitant]
     Route: 048
     Dates: start: 20090916, end: 20090930
  69. LORFENAMIN [Concomitant]
     Route: 048
  70. PYDOXAL [Concomitant]
     Route: 048
     Dates: start: 20090623, end: 20090629
  71. PYDOXAL [Concomitant]
     Route: 048
     Dates: start: 20090819, end: 20090825
  72. DECADRON [Concomitant]
     Route: 048
     Dates: start: 20091005, end: 20091005
  73. HEPARIN [Concomitant]
     Indication: PROPHYLAXIS
     Route: 061
     Dates: start: 20090703

REACTIONS (10)
  - PYREXIA [None]
  - PALMAR-PLANTAR ERYTHRODYSAESTHESIA SYNDROME [None]
  - HAEMOGLOBIN DECREASED [None]
  - DERMATITIS [None]
  - OVARIAN CANCER RECURRENT [None]
  - NAUSEA [None]
  - STOMATITIS [None]
  - MALAISE [None]
  - FLUSHING [None]
  - PIGMENTATION DISORDER [None]
